FAERS Safety Report 21103631 (Version 2)
Quarter: 2022Q3

REPORT INFORMATION
  Report Type: Spontaneous
  Country: US (occurrence: US)
  Receive Date: 20220720
  Receipt Date: 20220817
  Transmission Date: 20221026
  Serious: No
  Sender: FDA-Public Use
  Company Number: US-AIMMUNE THERAPEUTICS, INC.-2022AIMT00553

PATIENT

DRUGS (2)
  1. PALFORZIA [Suspect]
     Active Substance: PEANUT
     Indication: Food allergy
     Dosage: 3 MG, 1X/DAY
     Route: 048
     Dates: start: 20220630, end: 20220711
  2. PALFORZIA [Suspect]
     Active Substance: PEANUT
     Dosage: 3 MG, ONCE, LAST DOSE PRIOR EVENTS
     Route: 048
     Dates: start: 20220630, end: 20220630

REACTIONS (4)
  - Influenza like illness [Unknown]
  - Increased upper airway secretion [Unknown]
  - Lethargy [Unknown]
  - Abdominal pain upper [Unknown]

NARRATIVE: CASE EVENT DATE: 20220630
